FAERS Safety Report 19275359 (Version 1)
Quarter: 2021Q2

REPORT INFORMATION
  Report Type: Spontaneous
  Country: DE (occurrence: DE)
  Receive Date: 20210519
  Receipt Date: 20210519
  Transmission Date: 20210717
  Serious: Yes (Other)
  Sender: FDA-Public Use
  Company Number: DE-ALVOGEN-2021-ALVOGEN-116984

PATIENT
  Age: 70 Year

DRUGS (1)
  1. TENORETIC [Suspect]
     Active Substance: ATENOLOL\CHLORTHALIDONE
     Indication: PRODUCT USED FOR UNKNOWN INDICATION
     Route: 048

REACTIONS (5)
  - Tongue oedema [Unknown]
  - Swelling face [Unknown]
  - Dysphagia [Unknown]
  - Pruritus [Unknown]
  - Headache [Unknown]
